FAERS Safety Report 23867761 (Version 1)
Quarter: 2024Q2

REPORT INFORMATION
  Report Type: Spontaneous
  Country: US (occurrence: US)
  Receive Date: 20240517
  Receipt Date: 20240517
  Transmission Date: 20240716
  Serious: No
  Sender: FDA-Public Use
  Company Number: US-009507513-2405USA002117

PATIENT
  Age: 67 Year
  Sex: Female

DRUGS (1)
  1. INTEGRILIN [Suspect]
     Active Substance: EPTIFIBATIDE
     Indication: Cerebral artery thrombosis
     Dosage: 10 MILLIGRAM
     Route: 013

REACTIONS (1)
  - Product use in unapproved indication [Unknown]
